FAERS Safety Report 9161945 (Version 2)
Quarter: 2013Q1

REPORT INFORMATION
  Report Type: Spontaneous
  Country: IT (occurrence: IT)
  Receive Date: 20130314
  Receipt Date: 20130318
  Transmission Date: 20140127
  Serious: Yes (Hospitalization, Other)
  Sender: FDA-Public Use
  Company Number: IT-JNJFOC-20130300172

PATIENT
  Age: 57 Year
  Sex: Female

DRUGS (7)
  1. RISPERDAL [Suspect]
     Indication: PSYCHOTIC DISORDER
     Route: 048
     Dates: start: 20080101, end: 20130216
  2. PURINETHOL [Concomitant]
     Route: 065
  3. INSULIN GLARGINE [Concomitant]
     Route: 058
  4. CARVEDILOL [Concomitant]
     Route: 048
  5. INSULIN GLULISINE [Concomitant]
     Route: 058
  6. OMEPRAZOLE [Concomitant]
     Route: 065
  7. ENALAPRIL MALEATE [Concomitant]
     Route: 048

REACTIONS (3)
  - Dissociative disorder [Recovered/Resolved]
  - Overdose [Unknown]
  - Adverse drug reaction [Recovered/Resolved]
